FAERS Safety Report 9170559 (Version 1)
Quarter: 2013Q1

REPORT INFORMATION
  Report Type: Spontaneous
  Country: US (occurrence: None)
  Receive Date: 20130307
  Receipt Date: 20130307
  Transmission Date: 20140127
  Serious: Yes (Other)
  Sender: FDA-Public Use
  Company Number: AUR-APL-2013-01918

PATIENT
  Age: 56 Year
  Sex: Male

DRUGS (2)
  1. LEVOFLOXACIN (LEVOFLOXACIN) [Suspect]
     Indication: PNEUMONIA
     Dosage: (750 MG, 1 D) INTRAVENOUS
     Route: 042
  2. LEVOFLOXACIN (LEVOFLOXACIN) [Suspect]
     Indication: PNEUMONIA
     Dosage: (750 MG, 1 D), ORAL
     Route: 048

REACTIONS (4)
  - Pathogen resistance [None]
  - Lung infiltration [None]
  - Condition aggravated [None]
  - Pleural effusion [None]
